FAERS Safety Report 10485821 (Version 1)
Quarter: 2014Q4

REPORT INFORMATION
  Report Type: Spontaneous
  Country: US (occurrence: US)
  Receive Date: 20141001
  Receipt Date: 20141001
  Transmission Date: 20150528
  Serious: No
  Sender: FDA-Public Use
  Company Number: US-BIOGENIDEC-2014BI100240

PATIENT
  Sex: Male

DRUGS (2)
  1. AVONEX [Suspect]
     Active Substance: INTERFERON BETA-1A
     Indication: MULTIPLE SCLEROSIS
     Route: 030
  2. AVONEX [Suspect]
     Active Substance: INTERFERON BETA-1A
     Indication: MULTIPLE SCLEROSIS
     Route: 030

REACTIONS (7)
  - Gastric disorder [Not Recovered/Not Resolved]
  - Influenza like illness [Recovered/Resolved]
  - Tremor [Recovered/Resolved]
  - Phobia [Recovered/Resolved]
  - Multiple sclerosis [Not Recovered/Not Resolved]
  - Drug intolerance [Recovered/Resolved]
  - Malaise [Not Recovered/Not Resolved]
